FAERS Safety Report 7240580-4 (Version None)
Quarter: 2011Q1

REPORT INFORMATION
  Report Type: 
  Country: None (occurrence: None)
  Receive Date: 20110120
  Receipt Date: 20110120
  Transmission Date: 20110831
  Serious: Yes (Other)
  Sender: FDA-Public Use
  Company Number: None

PATIENT
  Age: 56 Year
  Sex: Female
  Weight: 55.7924 kg

DRUGS (3)
  1. MIRALAX [Suspect]
     Indication: CONSTIPATION
     Dosage: 70 (OR NORMAL DOSE) ONCE PER DAY ORAL
     Route: 048
     Dates: start: 20101207
  2. MIRALAX [Suspect]
     Indication: CONSTIPATION
     Dosage: 70 (OR NORMAL DOSE) ONCE PER DAY ORAL
     Route: 048
     Dates: start: 20101209
  3. MIRALAX [Suspect]
     Indication: CONSTIPATION
     Dosage: 70 (OR NORMAL DOSE) ONCE PER DAY ORAL
     Route: 048
     Dates: start: 20101208

REACTIONS (4)
  - SWELLING FACE [None]
  - CHAPPED LIPS [None]
  - LIP SWELLING [None]
  - PRURITUS [None]
